FAERS Safety Report 18705328 (Version 1)
Quarter: 2021Q1

REPORT INFORMATION
  Report Type: Spontaneous
  Country: US (occurrence: US)
  Receive Date: 20210106
  Receipt Date: 20210106
  Transmission Date: 20210419
  Serious: No
  Sender: FDA-Public Use
  Company Number: US-BIOVITRUM-2020US8158

PATIENT
  Sex: Male
  Weight: 7 kg

DRUGS (7)
  1. SENNA?S [Concomitant]
     Active Substance: DOCUSATE SODIUM\SENNOSIDES
     Dosage: 8.6MG?50MG
  2. D?VI?SOL [Concomitant]
     Dosage: 10(400)/ML DROPS,
  3. SYNAGIS [Suspect]
     Active Substance: PALIVIZUMAB
     Indication: ANTIVIRAL PROPHYLAXIS
     Route: 030
     Dates: start: 20201110
  4. FAMOTIDINE. [Concomitant]
     Active Substance: FAMOTIDINE
     Dosage: 40MG/5ML
  5. CAROSPIR [Concomitant]
     Active Substance: SPIRONOLACTONE
     Dosage: 25 MG/5 ML
  6. FUROSEMIDE. [Concomitant]
     Active Substance: FUROSEMIDE
     Dosage: 10 MG/ML
  7. EPINEPHRINE HCL [Concomitant]
     Active Substance: EPINEPHRINE

REACTIONS (5)
  - Abdominal discomfort [Unknown]
  - Constipation [Unknown]
  - Weight decreased [Unknown]
  - Vomiting [Unknown]
  - Gastroenteritis viral [Unknown]
